FAERS Safety Report 14648634 (Version 1)
Quarter: 2018Q1

REPORT INFORMATION
  Report Type: Spontaneous
  Country: US (occurrence: US)
  Receive Date: 20180315
  Receipt Date: 20180315
  Transmission Date: 20180509
  Serious: No
  Sender: FDA-Public Use
  Company Number: None

PATIENT
  Age: 73 Year
  Sex: Male

DRUGS (2)
  1. TARCEVA [Suspect]
     Active Substance: ERLOTINIB HYDROCHLORIDE
     Indication: LUNG NEOPLASM MALIGNANT
  2. OPDIVO [Suspect]
     Active Substance: NIVOLUMAB

REACTIONS (2)
  - Loss of personal independence in daily activities [None]
  - Drug ineffective [None]

NARRATIVE: CASE EVENT DATE: 20180315
